FAERS Safety Report 10564259 (Version 2)
Quarter: 2014Q4

REPORT INFORMATION
  Report Type: Spontaneous
  Country: AT (occurrence: AT)
  Receive Date: 20141104
  Receipt Date: 20141111
  Transmission Date: 20150529
  Serious: Yes (Hospitalization)
  Sender: FDA-Public Use
  Company Number: AT-B.I. PHARMACEUTICALS,INC./RIDGEFIELD-2014-BI-52066BP

PATIENT
  Age: 75 Year
  Sex: Female
  Weight: 94 kg

DRUGS (30)
  1. MIASERIN [Concomitant]
     Indication: DEPRESSION
     Route: 065
     Dates: start: 1999
  2. URIVESC [Concomitant]
     Active Substance: TROSPIUM CHLORIDE
     Route: 065
     Dates: start: 20140429
  3. PANTOPRAZOLE [Concomitant]
     Active Substance: PANTOPRAZOLE SODIUM
     Indication: GASTROOESOPHAGEAL REFLUX DISEASE
     Route: 065
     Dates: start: 2011
  4. ACTOS [Concomitant]
     Active Substance: PIOGLITAZONE HYDROCHLORIDE
     Indication: TYPE 2 DIABETES MELLITUS
     Route: 065
     Dates: start: 20140611, end: 20141010
  5. METFORMIN [Concomitant]
     Active Substance: METFORMIN HYDROCHLORIDE
     Dosage: 2000 MG
     Route: 065
     Dates: start: 20140429, end: 20140513
  6. URIVESC [Concomitant]
     Active Substance: TROSPIUM CHLORIDE
     Indication: URINARY INCONTINENCE
     Route: 065
     Dates: start: 2012
  7. SIRDALUD [Concomitant]
     Active Substance: TIZANIDINE
     Indication: INTERVERTEBRAL DISC PROTRUSION
     Route: 065
     Dates: start: 2010
  8. METFORMIN [Concomitant]
     Active Substance: METFORMIN HYDROCHLORIDE
     Dosage: 2000 MG
     Route: 065
     Dates: end: 20141010
  9. JENTADUETO [Concomitant]
     Active Substance: LINAGLIPTIN\METFORMIN HYDROCHLORIDE
     Dosage: DOSE PER APPLICATION : 2.5/ 1000
     Route: 065
     Dates: start: 20141015
  10. THROMBO ASS [Concomitant]
     Active Substance: ASPIRIN
     Dosage: DOSE PER APPLICATION: 2,5/ 1000
     Route: 065
     Dates: start: 20141016
  11. CYMBALTA [Concomitant]
     Active Substance: DULOXETINE HYDROCHLORIDE
     Indication: DEPRESSION
     Route: 065
     Dates: start: 2011
  12. VALSARTAN. [Concomitant]
     Active Substance: VALSARTAN
     Route: 065
     Dates: start: 20140429
  13. METFORMIN [Concomitant]
     Active Substance: METFORMIN HYDROCHLORIDE
     Dosage: 2000 MG
     Route: 065
     Dates: start: 20141015
  14. MIASERIN [Concomitant]
     Route: 065
     Dates: start: 20140429
  15. SIMVASTAD [Concomitant]
     Indication: HYPERLIPIDAEMIA
     Route: 065
     Dates: start: 2006
  16. VALSARTAN. [Concomitant]
     Active Substance: VALSARTAN
     Indication: HYPERTENSION
     Route: 065
     Dates: start: 20140416
  17. DOXAZOCIN [Concomitant]
     Active Substance: DOXAZOSIN MESYLATE
     Indication: HYPERTENSION
     Route: 065
     Dates: start: 2004
  18. NOMEXOR [Concomitant]
     Active Substance: NEBIVOLOL HYDROCHLORIDE
     Indication: HYPERTENSION
     Route: 065
     Dates: start: 20140416
  19. FURON [Concomitant]
     Active Substance: FUROSEMIDE
     Indication: HYPERTENSION
     Route: 065
     Dates: start: 2013
  20. JENTADUETO [Concomitant]
     Active Substance: LINAGLIPTIN\METFORMIN HYDROCHLORIDE
     Indication: TYPE 2 DIABETES MELLITUS
     Dosage: DOSE PER APPLICATION : 2.5/ 1000
     Route: 065
     Dates: start: 20140514, end: 20141011
  21. VALSARCOMP [Concomitant]
     Indication: HYPERTENSION
     Route: 065
     Dates: start: 20140416
  22. TRADJENTA [Suspect]
     Active Substance: LINAGLIPTIN
     Route: 065
     Dates: start: 20140514, end: 20141010
  23. TRADJENTA [Suspect]
     Active Substance: LINAGLIPTIN
     Route: 065
     Dates: start: 20141015
  24. THROMBO ASS [Concomitant]
     Active Substance: ASPIRIN
     Indication: PROPHYLAXIS
     Route: 065
     Dates: start: 20140416, end: 20141003
  25. SIMVASTAD [Concomitant]
     Route: 065
     Dates: start: 20140429
  26. ALLOPURINOL. [Concomitant]
     Active Substance: ALLOPURINOL
     Indication: HYPERCALCAEMIA
     Route: 065
     Dates: start: 2004
  27. CYMBALTA [Concomitant]
     Active Substance: DULOXETINE HYDROCHLORIDE
     Route: 065
     Dates: start: 20140429
  28. TRADJENTA [Suspect]
     Active Substance: LINAGLIPTIN
     Indication: TYPE 2 DIABETES MELLITUS
     Route: 065
     Dates: start: 1990
  29. ACTOS [Concomitant]
     Active Substance: PIOGLITAZONE HYDROCHLORIDE
     Route: 065
     Dates: start: 20141015
  30. METFORMIN [Concomitant]
     Active Substance: METFORMIN HYDROCHLORIDE
     Indication: TYPE 2 DIABETES MELLITUS
     Dosage: 2000 MG
     Route: 065
     Dates: start: 1990

REACTIONS (1)
  - Cholecystitis chronic [Recovered/Resolved]

NARRATIVE: CASE EVENT DATE: 20141010
